FAERS Safety Report 21608356 (Version 1)
Quarter: 2022Q4

REPORT INFORMATION
  Report Type: Spontaneous
  Country: US (occurrence: None)
  Receive Date: 20221116
  Receipt Date: 20221116
  Transmission Date: 20230113
  Serious: Yes (Life-Threatening, Hospitalization)
  Sender: FDA-Public Use
  Company Number: None

PATIENT
  Age: 76 Year
  Sex: Female
  Weight: 84.5 kg

DRUGS (1)
  1. BEBTELOVIMAB [Suspect]
     Active Substance: BEBTELOVIMAB
     Indication: COVID-19
     Dosage: FREQUENCY : ONCE;?
     Route: 042
     Dates: start: 20221115, end: 20221115

REACTIONS (6)
  - Atrioventricular block [None]
  - Nausea [None]
  - Dizziness [None]
  - Ventricular extrasystoles [None]
  - Ventricular tachycardia [None]
  - Cardiac pacemaker insertion [None]

NARRATIVE: CASE EVENT DATE: 20221115
